FAERS Safety Report 16152847 (Version 2)
Quarter: 2019Q2

REPORT INFORMATION
  Report Type: Spontaneous
  Country: US (occurrence: US)
  Receive Date: 20190403
  Receipt Date: 20190521
  Transmission Date: 20190711
  Serious: No
  Sender: FDA-Public Use
  Company Number: US-VERTEX PHARMACEUTICALS-2018-003983

PATIENT
  Age: 31 Year
  Sex: Female

DRUGS (2)
  1. ORKAMBI [Suspect]
     Active Substance: IVACAFTOR\LUMACAFTOR
     Dosage: 1 DOSAGE FORM, BID
     Route: 048
     Dates: start: 201805, end: 20181004
  2. ORKAMBI [Suspect]
     Active Substance: IVACAFTOR\LUMACAFTOR
     Indication: CYSTIC FIBROSIS
     Dosage: 200/125MG, FREQ UNKNOWN
     Route: 048
     Dates: start: 20151228, end: 2018

REACTIONS (10)
  - Infection [Unknown]
  - Haemoptysis [Recovered/Resolved]
  - Fatigue [Unknown]
  - Asthma [Recovered/Resolved]
  - Respiration abnormal [Recovered/Resolved]
  - Drug ineffective [Unknown]
  - Pyrexia [Recovered/Resolved]
  - Headache [Recovered/Resolved]
  - Pulmonary function test decreased [Unknown]
  - Feeling abnormal [Unknown]

NARRATIVE: CASE EVENT DATE: 201512
